FAERS Safety Report 9897464 (Version 5)
Quarter: 2015Q1

REPORT INFORMATION
  Report Type: Spontaneous
  Country: US (occurrence: US)
  Receive Date: 20140214
  Receipt Date: 20150217
  Transmission Date: 20150721
  Serious: Yes (Hospitalization, Other)
  Sender: FDA-Public Use
  Company Number: US-BAYER-2014-023227

PATIENT
  Age: 23 Year
  Sex: Female
  Weight: 68.93 kg

DRUGS (3)
  1. ORTHO TRI CYCLEN [Concomitant]
     Active Substance: ETHINYL ESTRADIOL\NORGESTIMATE
  2. MIRENA [Suspect]
     Active Substance: LEVONORGESTREL
     Indication: CONTRACEPTION
     Dosage: 20 MCG/24HR, CONT
     Route: 015
     Dates: start: 20080805, end: 20100727
  3. AMOXICILLIN. [Concomitant]
     Active Substance: AMOXICILLIN
     Indication: URINARY TRACT INFECTION

REACTIONS (14)
  - Device failure [None]
  - Injury [None]
  - Pain [None]
  - Medical device discomfort [None]
  - Procedural pain [None]
  - Uterine perforation [None]
  - Emotional distress [None]
  - Scar [None]
  - Depression [None]
  - Pregnancy with contraceptive device [None]
  - Stillbirth [None]
  - Device issue [None]
  - Medical device pain [None]
  - Drug ineffective [None]

NARRATIVE: CASE EVENT DATE: 200912
